FAERS Safety Report 9196881 (Version 1)
Quarter: 2013Q1

REPORT INFORMATION
  Report Type: Spontaneous
  Country: US (occurrence: US)
  Receive Date: 20130328
  Receipt Date: 20130328
  Transmission Date: 20140127
  Serious: Yes (Death, Hospitalization, Other)
  Sender: FDA-Public Use
  Company Number: US-B.I. PHARMACEUTICALS,INC./RIDGEFIELD-2013-BI-07844GD

PATIENT
  Age: 66 Year
  Sex: Female

DRUGS (2)
  1. MELOXICAM [Suspect]
     Indication: OSTEOARTHRITIS
     Dosage: 15 MG
  2. CIPROFLOXACIN [Suspect]
     Indication: URINARY TRACT INFECTION

REACTIONS (10)
  - Granulomatosis with polyangiitis [Fatal]
  - Renal haemorrhage [Fatal]
  - Retroperitoneal haemorrhage [Fatal]
  - Renal haematoma [Fatal]
  - Circulatory collapse [Fatal]
  - Hypotension [Fatal]
  - Haemoglobin decreased [Fatal]
  - Renal failure acute [Unknown]
  - Abdominal pain lower [Unknown]
  - Back pain [Unknown]
